FAERS Safety Report 26203031 (Version 1)
Quarter: 2025Q4

REPORT INFORMATION
  Report Type: Spontaneous
  Country: CN (occurrence: CN)
  Receive Date: 20251226
  Receipt Date: 20251226
  Transmission Date: 20260118
  Serious: Yes (Hospitalization)
  Sender: ROCHE
  Company Number: CN-ROCHE-10000464528

PATIENT
  Age: 38 Year
  Sex: Female

DRUGS (7)
  1. RITUXIMAB [Suspect]
     Active Substance: RITUXIMAB
     Indication: Liver disorder
     Route: 041
     Dates: start: 20251125, end: 20251125
  2. TAMIFLU [Concomitant]
     Active Substance: OSELTAMIVIR PHOSPHATE
     Indication: Antiviral prophylaxis
  3. LEUCOGEN [Concomitant]
     Active Substance: LEUCOGEN
  4. FERROUS SUCCINATE [Concomitant]
     Active Substance: FERROUS SUCCINATE
  5. MEROPENEM [Concomitant]
     Active Substance: MEROPENEM
     Indication: Anti-infective therapy
     Route: 041
  6. LEVOFLOXACIN [Concomitant]
     Active Substance: LEVOFLOXACIN
     Indication: Anti-infective therapy
     Route: 048
  7. FLUCONAZOLE [Concomitant]
     Active Substance: FLUCONAZOLE
     Route: 048

REACTIONS (1)
  - Myelosuppression [Recovering/Resolving]

NARRATIVE: CASE EVENT DATE: 20251130
